FAERS Safety Report 9297105 (Version 1)
Quarter: 2013Q2

REPORT INFORMATION
  Report Type: Spontaneous
  Country: IT (occurrence: IT)
  Receive Date: 20130520
  Receipt Date: 20130520
  Transmission Date: 20140414
  Serious: Yes (Hospitalization)
  Sender: FDA-Public Use
  Company Number: IT-ROCHE-1217677

PATIENT
  Age: 36 Year
  Sex: Male

DRUGS (9)
  1. VALIUM [Suspect]
     Indication: PRODUCT USED FOR UNKNOWN INDICATION
     Route: 048
     Dates: start: 20130117, end: 20130117
  2. EN [Suspect]
     Indication: PRODUCT USED FOR UNKNOWN INDICATION
     Route: 048
     Dates: start: 20130117, end: 20130117
  3. GEMFIBROZIL [Concomitant]
  4. TRAMADOL HYDROCHLORIDE [Concomitant]
  5. NEURONTIN [Concomitant]
     Indication: EPILEPSY
  6. ZANTAC [Concomitant]
  7. MUSCORIL [Concomitant]
  8. SEROQUEL [Concomitant]
  9. REMERON [Concomitant]

REACTIONS (3)
  - Drug abuse [Unknown]
  - Respiratory failure [Recovered/Resolved]
  - Sopor [Recovered/Resolved]
